FAERS Safety Report 8205500-4 (Version None)
Quarter: 2012Q1

REPORT INFORMATION
  Report Type: 
  Country: None (occurrence: None)
  Receive Date: 20120313
  Receipt Date: 20120307
  Transmission Date: 20120608
  Serious: Yes (Hospitalization, Other)
  Sender: FDA-Public Use
  Company Number: SE-ABBOTT-12P-150-0902822-00

PATIENT
  Sex: Female

DRUGS (3)
  1. MELOXICAM [Concomitant]
     Indication: PRODUCT USED FOR UNKNOWN INDICATION
  2. PREDNISOLONE [Concomitant]
     Indication: PRODUCT USED FOR UNKNOWN INDICATION
  3. HUMIRA [Suspect]
     Indication: SPONDYLITIS
     Dosage: 40 MG CYCLICALLY
     Route: 058
     Dates: start: 20100805, end: 20110509

REACTIONS (3)
  - PERIPHERAL SENSORIMOTOR NEUROPATHY [None]
  - GUILLAIN-BARRE SYNDROME [None]
  - CHRONIC INFLAMMATORY DEMYELINATING POLYRADICULONEUROPATHY [None]
